FAERS Safety Report 9207340 (Version 1)
Quarter: 2013Q1

REPORT INFORMATION
  Report Type: Spontaneous
  Country: US (occurrence: None)
  Receive Date: 20120803
  Receipt Date: 20120803
  Transmission Date: 20140127
  Serious: Yes (Other)
  Sender: FDA-Public Use
  Company Number: 2011SP048368

PATIENT
  Age: 53 Year
  Sex: Male

DRUGS (3)
  1. INTRON A [Suspect]
     Indication: MALIGNANT MELANOMA
     Route: 042
     Dates: start: 20110927
  2. BYSTOLIC [Concomitant]
  3. LORATADINE [Concomitant]

REACTIONS (5)
  - Tremor [None]
  - Blood urine present [None]
  - Vomiting [None]
  - Urticaria [None]
  - Feeling cold [None]
